FAERS Safety Report 18546498 (Version 1)
Quarter: 2020Q4

REPORT INFORMATION
  Report Type: Spontaneous
  Country: US (occurrence: US)
  Receive Date: 20201125
  Receipt Date: 20201125
  Transmission Date: 20210114
  Serious: No
  Sender: FDA-Public Use
  Company Number: US-PFIZER INC-2020461687

PATIENT
  Age: 58 Year
  Sex: Female

DRUGS (2)
  1. XELJANZ XR [Suspect]
     Active Substance: TOFACITINIB CITRATE
     Indication: PSORIATIC ARTHROPATHY
  2. XELJANZ XR [Suspect]
     Active Substance: TOFACITINIB CITRATE
     Indication: PSORIASIS
     Dosage: 11 MG, 1X/DAY
     Dates: start: 20200623, end: 2020

REACTIONS (5)
  - Headache [Unknown]
  - Cough [Unknown]
  - Suspected COVID-19 [Unknown]
  - Fatigue [Unknown]
  - Throat irritation [Unknown]

NARRATIVE: CASE EVENT DATE: 2020
